FAERS Safety Report 13520594 (Version 1)
Quarter: 2017Q2

REPORT INFORMATION
  Report Type: Report from Study
  Country: None (occurrence: NL)
  Receive Date: 20170508
  Receipt Date: 20170508
  Transmission Date: 20170830
  Serious: Yes (Hospitalization)
  Sender: FDA-Public Use
  Company Number: NL-ABBVIE-17K-114-1965396-00

PATIENT
  Sex: Male

DRUGS (1)
  1. DUODOPA [Suspect]
     Active Substance: CARBIDOPA\LEVODOPA
     Indication: PARKINSON^S DISEASE
     Dosage: MD: 4, CD: 2.7, ED: 2, CND: 2.3
     Route: 050
     Dates: start: 20160421

REACTIONS (3)
  - Fibroma [Not Recovered/Not Resolved]
  - Stoma site reaction [Not Recovered/Not Resolved]
  - Bacterial test positive [Recovering/Resolving]
